FAERS Safety Report 9117033 (Version 1)
Quarter: 2013Q1

REPORT INFORMATION
  Report Type: Spontaneous
  Country: FI (occurrence: FI)
  Receive Date: 20130225
  Receipt Date: 20130225
  Transmission Date: 20140127
  Serious: Yes (Other)
  Sender: FDA-Public Use
  Company Number: FI-JNJFOC-20130206779

PATIENT
  Age: 80 Year
  Sex: Female

DRUGS (3)
  1. REMINYL [Suspect]
     Indication: ACCIDENTAL EXPOSURE TO PRODUCT
     Route: 065
  2. ANTIHYPERTENSIVES [Suspect]
     Indication: ACCIDENTAL EXPOSURE TO PRODUCT
     Route: 065
  3. ANTIHYPERTENSIVES [Concomitant]
     Indication: HYPERTENSION
     Route: 065

REACTIONS (2)
  - Medication error [Unknown]
  - Vomiting [Unknown]
